FAERS Safety Report 16232048 (Version 2)
Quarter: 2019Q2

REPORT INFORMATION
  Report Type: Spontaneous
  Country: CZ (occurrence: CZ)
  Receive Date: 20190424
  Receipt Date: 20190506
  Transmission Date: 20190711
  Serious: Yes (Death, Other)
  Sender: FDA-Public Use
  Company Number: CZ-TEVA-2019-CZ-1039709

PATIENT
  Sex: Male

DRUGS (7)
  1. SPIRONOLACTONE. [Concomitant]
     Active Substance: SPIRONOLACTONE
  2. TREPROSTINIL. [Concomitant]
     Active Substance: TREPROSTINIL
  3. SILDENAFIL. [Suspect]
     Active Substance: SILDENAFIL
     Indication: PULMONARY HYPERTENSION
     Route: 048
     Dates: start: 2018, end: 2018
  4. FUROSEMIDE. [Concomitant]
     Active Substance: FUROSEMIDE
     Route: 042
  5. HYDROCHLOROTHIAZIDE. [Concomitant]
     Active Substance: HYDROCHLOROTHIAZIDE
     Route: 042
  6. TRANDOLAPRIL. [Concomitant]
     Active Substance: TRANDOLAPRIL
  7. AMBRISENTAN [Concomitant]
     Active Substance: AMBRISENTAN

REACTIONS (2)
  - Haemodynamic instability [Unknown]
  - Respiratory failure [Unknown]

NARRATIVE: CASE EVENT DATE: 2018
